FAERS Safety Report 21312818 (Version 1)
Quarter: 2022Q3

REPORT INFORMATION
  Report Type: Spontaneous
  Country: US (occurrence: None)
  Receive Date: 20220908
  Receipt Date: 20220908
  Transmission Date: 20221027
  Serious: No
  Sender: FDA-Public Use
  Company Number: None

PATIENT
  Sex: Female

DRUGS (2)
  1. NASACORT [Suspect]
     Active Substance: TRIAMCINOLONE ACETONIDE
  2. AZELASTINE [Suspect]
     Active Substance: AZELASTINE

REACTIONS (1)
  - Drug ineffective [None]
